FAERS Safety Report 6498302-0 (Version None)
Quarter: 2009Q4

REPORT INFORMATION
  Report Type: 
  Country: None (occurrence: None)
  Receive Date: 20091127
  Receipt Date: 20090721
  Transmission Date: 20100525
  Serious: Yes (Hospitalization)
  Sender: FDA-Public Use
  Company Number: 288656

PATIENT
  Age: 47 Year
  Sex: Female

DRUGS (2)
  1. NOVOLOG [Suspect]
     Indication: TYPE 1 DIABETES MELLITUS
     Dosage: SLIDING SCALE, SUBCUTAN.-PUMP;
     Route: 058
     Dates: start: 20070101
  2. NOVOLOG [Suspect]
     Dosage: SLIDING SCALE, SUBCUTAN. -PUMP
     Route: 058

REACTIONS (1)
  - BLOOD GLUCOSE INCREASED [None]
